FAERS Safety Report 9652443 (Version 1)
Quarter: 2013Q4

REPORT INFORMATION
  Report Type: Spontaneous
  Country: AU (occurrence: AU)
  Receive Date: 20131029
  Receipt Date: 20131029
  Transmission Date: 20140711
  Serious: Yes (Hospitalization, Other)
  Sender: FDA-Public Use
  Company Number: AU-B.I. PHARMACEUTICALS,INC./RIDGEFIELD-2013-BI-34044GD

PATIENT
  Age: 64 Year
  Sex: Male

DRUGS (3)
  1. PRADAXA [Suspect]
     Indication: ATRIAL FIBRILLATION
     Dosage: 300 MG
  2. HEPARIN [Suspect]
     Dosage: 50000 U
  3. HEPARIN [Suspect]
     Dosage: 1250 U/H

REACTIONS (3)
  - Aortic dissection [Unknown]
  - Renal failure [Unknown]
  - Post procedural haemorrhage [Unknown]
